FAERS Safety Report 10420190 (Version 1)
Quarter: 2014Q3

REPORT INFORMATION
  Report Type: Spontaneous
  Country: US (occurrence: None)
  Receive Date: 20140701
  Receipt Date: 20140701
  Transmission Date: 20150326
  Serious: No
  Sender: FDA-Public Use
  Company Number: 1000067265

PATIENT
  Age: 42 Year
  Sex: Female

DRUGS (11)
  1. PANTOPRAZOLE [Concomitant]
     Active Substance: PANTOPRAZOLE SODIUM
  2. LINZESS [Suspect]
     Active Substance: LINACLOTIDE
     Dosage: 290 MCG (290 MCG, 1 IN 1 D)
  3. DICYCLOMINE HYDROCHLORIDE (DICYCLOVERINE HYDROCHLORIDE) (DICYCLOVERINE HYDROCHLORIDE) [Concomitant]
  4. RANITIDINE (RANITIDINE) (RANITIDINE) [Concomitant]
  5. ALPRAZOLAM (ALPRAZOLAM) (ALPRAZOLAM) [Concomitant]
     Active Substance: ALPRAZOLAM
  6. LINZESS [Suspect]
     Active Substance: LINACLOTIDE
     Dosage: 145 MCG (145 MCG, 1 IN 1 D)
  7. LEVOTHYROXINE (LEVOTHYROXINE SODIUM (LEVOTHYROXINE SODIUM) [Concomitant]
  8. MEPERIDINE HCL (PETHIDINE HYDROCHLORIDE) (PETHIDINE HYDROCHLORIDE) [Concomitant]
  9. BETHANECHOL (BETHANECHOL) (BETHANECHOL) [Concomitant]
  10. CARAFATE (SUCRALFATE) (SUCRALFATE) [Concomitant]
  11. PROMETHAZINE HCL (PROMETHAZINE HYDROCHLORIDE) (PROMETHAZINE HYDROCHLORIDE) [Concomitant]

REACTIONS (1)
  - Fatigue [None]
